FAERS Safety Report 19289348 (Version 1)
Quarter: 2021Q2

REPORT INFORMATION
  Report Type: Spontaneous
  Country: US (occurrence: US)
  Receive Date: 20210521
  Receipt Date: 20210521
  Transmission Date: 20210717
  Serious: Yes (Other)
  Sender: FDA-Public Use
  Company Number: US-MYLANLABS-2021M1029307

PATIENT
  Age: 61 Year
  Sex: Female

DRUGS (1)
  1. METOPROLOL. [Suspect]
     Active Substance: METOPROLOL
     Indication: STRESS CARDIOMYOPATHY
     Dosage: UNK
     Route: 065

REACTIONS (2)
  - Phaeochromocytoma [Recovering/Resolving]
  - Unmasking of previously unidentified disease [Recovering/Resolving]
